FAERS Safety Report 26081988 (Version 1)
Quarter: 2025Q4

REPORT INFORMATION
  Report Type: Spontaneous
  Country: US (occurrence: None)
  Receive Date: 20251121
  Receipt Date: 20251121
  Transmission Date: 20260117
  Serious: No
  Sender: FDA-CTU
  Company Number: None

PATIENT
  Age: 29 Year
  Sex: Female
  Weight: 55 kg

DRUGS (1)
  1. METHYLPREDNISOLONE [Suspect]
     Active Substance: METHYLPREDNISOLONE
     Indication: Back pain
     Dosage: OTHER QUANTITY : 21 TABLET(S);?OTHER FREQUENCY : 6,5,4,3,2,1;?
     Route: 048
     Dates: start: 20251023, end: 20251027

REACTIONS (13)
  - Product packaging issue [None]
  - Product design confusion [None]
  - Product dose confusion [None]
  - Hot flush [None]
  - Erythema [None]
  - Feeling hot [None]
  - Insomnia [None]
  - Product label confusion [None]
  - Increased appetite [None]
  - Product communication issue [None]
  - Euphoric mood [None]
  - Agitation [None]
  - Inappropriate schedule of product administration [None]

NARRATIVE: CASE EVENT DATE: 20251030
